FAERS Safety Report 12548527 (Version 1)
Quarter: 2016Q3

REPORT INFORMATION
  Report Type: Spontaneous
  Country: US (occurrence: None)
  Receive Date: 20160711
  Receipt Date: 20160711
  Transmission Date: 20161109
  Serious: No
  Sender: FDA-Public Use
  Company Number: None

PATIENT
  Age: 67 Year
  Sex: Male
  Weight: 136.08 kg

DRUGS (1)
  1. VICODIN [Suspect]
     Active Substance: ACETAMINOPHEN\HYDROCODONE BITARTRATE
     Indication: PAIN MANAGEMENT
     Dosage: 500 MG 3 PILLS 4X/DAY ORAL
     Route: 048
     Dates: start: 20090731, end: 20140228

REACTIONS (3)
  - Product substitution issue [None]
  - Abdominal discomfort [None]
  - Memory impairment [None]

NARRATIVE: CASE EVENT DATE: 201401
